FAERS Safety Report 7548091-3 (Version None)
Quarter: 2011Q2

REPORT INFORMATION
  Report Type: 
  Country: None (occurrence: None)
  Receive Date: 20110615
  Receipt Date: 20101227
  Transmission Date: 20111010
  Serious: Yes (Death, Hospitalization, Other)
  Sender: FDA-Public Use
  Company Number: US-BAYER-201011048NA

PATIENT
  Age: 79 Year
  Sex: Male
  Weight: 77.098 kg

DRUGS (20)
  1. RED BLOOD CELLS [Concomitant]
     Indication: CORONARY ARTERY BYPASS
     Dosage: 10 UNITS
     Route: 042
     Dates: start: 19991203, end: 19991203
  2. MORPHINE [Concomitant]
     Dosage: 10 MG, UNK
     Route: 042
     Dates: start: 19991203, end: 19991203
  3. TOPROL-XL [Concomitant]
     Indication: PRODUCT USED FOR UNKNOWN INDICATION
  4. LIDOCAINE [Concomitant]
     Dosage: 100 MG, UNK
     Route: 042
     Dates: start: 19991203, end: 19991203
  5. NITROGLYCERIN [Concomitant]
     Indication: CORONARY ARTERY BYPASS
     Dosage: DRIP
     Route: 042
  6. CEFUROXIME [Concomitant]
     Indication: CORONARY ARTERY BYPASS
     Dosage: 750 MG
     Route: 042
  7. LASIX [Concomitant]
     Dosage: 20 MG
     Route: 042
     Dates: start: 19991203, end: 19991203
  8. HYDROCHLOROTHIAZIDE [Concomitant]
     Indication: PRODUCT USED FOR UNKNOWN INDICATION
     Dosage: 25 MG
     Route: 048
  9. PROTAMINE SULFATE [Concomitant]
     Dosage: 450 MG, UNK
     Route: 042
     Dates: start: 19991203, end: 19991203
  10. NEOSYNEPHRINE [Concomitant]
     Dosage: 1 MG, UNK
     Route: 042
     Dates: start: 19991203, end: 19991203
  11. LASIX [Concomitant]
     Indication: PRODUCT USED FOR UNKNOWN INDICATION
     Dosage: 100 MG
     Route: 042
  12. PLATELETS [Concomitant]
     Indication: CORONARY ARTERY BYPASS
     Dosage: 12 UNITS
  13. LOSARTAN POTASSIUM [Concomitant]
     Indication: PRODUCT USED FOR UNKNOWN INDICATION
     Dosage: 25 MG
     Route: 048
  14. TRASYLOL [Suspect]
     Indication: CORONARY ARTERY BYPASS
     Dosage: 200 ML
     Route: 042
     Dates: start: 19991203, end: 19991203
  15. HEPARIN [Concomitant]
     Indication: CORONARY ARTERY BYPASS
     Route: 042
  16. DEMEROL [Concomitant]
     Dosage: 5 MG, UNK
     Route: 042
     Dates: start: 19991203, end: 19991203
  17. INSULIN [Concomitant]
     Dosage: 15 U, UNK
     Route: 042
     Dates: start: 19991203, end: 19991203
  18. FRESH FROZEN PLASMA [Concomitant]
     Indication: CORONARY ARTERY BYPASS
     Dosage: 2 UNITS
     Dates: start: 19991203, end: 19991203
  19. HYZAAR [Concomitant]
     Indication: PRODUCT USED FOR UNKNOWN INDICATION
  20. PROPRANOLOL [Concomitant]
     Dosage: 2 MG, UNK
     Route: 042
     Dates: start: 19991203, end: 19991203

REACTIONS (14)
  - CEREBROVASCULAR ACCIDENT [None]
  - PAIN [None]
  - DEATH [None]
  - DEPRESSION [None]
  - RENAL INJURY [None]
  - FEAR [None]
  - ANHEDONIA [None]
  - CARDIAC DISORDER [None]
  - UNEVALUABLE EVENT [None]
  - INJURY [None]
  - RENAL FAILURE [None]
  - ORGAN FAILURE [None]
  - ANXIETY [None]
  - RENAL IMPAIRMENT [None]
